FAERS Safety Report 6996593-0 (Version None)
Quarter: 2010Q3

REPORT INFORMATION
  Report Type: 
  Country: None (occurrence: None)
  Receive Date: 20100918
  Receipt Date: 20090626
  Transmission Date: 20110219
  Serious: No
  Sender: FDA-Public Use
  Company Number: US-WYE-H09436009

PATIENT
  Age: 74 Year
  Sex: Female
  Weight: 70.37 kg

DRUGS (6)
  1. EFFEXOR XR [Suspect]
     Indication: DEPRESSION
     Route: 048
  2. LEVOTHYROXINE [Concomitant]
  3. ATENOLOL [Concomitant]
  4. HYDROCHLOROTHIAZIDE [Concomitant]
  5. SIMVASTATIN [Concomitant]
  6. OMEPRAZOLE [Concomitant]

REACTIONS (4)
  - ABDOMINAL DISCOMFORT [None]
  - FOREIGN BODY [None]
  - OROPHARYNGEAL DISCOMFORT [None]
  - PRODUCT QUALITY ISSUE [None]
